FAERS Safety Report 8796040 (Version 1)
Quarter: 2012Q4

REPORT INFORMATION
  Report Type: 
  Country: US (occurrence: US)
  Receive Date: 20120919
  Receipt Date: 20120919
  Transmission Date: 20130627
  Serious: No
  Sender: FDA-Public Use
  Company Number: US-PFIZER INC-2012228203

PATIENT
  Age: 59 Year
  Sex: Male

DRUGS (1)
  1. SUTENT [Suspect]
     Indication: RENAL CELL CARCINOMA
     Dosage: 12.5 mg, UNK
     Route: 048
     Dates: start: 20120616, end: 20120816

REACTIONS (2)
  - Disease progression [Unknown]
  - Renal cell carcinoma [Unknown]
